FAERS Safety Report 8272558-6 (Version None)
Quarter: 2012Q2

REPORT INFORMATION
  Report Type: 
  Country: None (occurrence: None)
  Receive Date: 20120410
  Receipt Date: 20120403
  Transmission Date: 20120825
  Serious: Yes (Death, Other)
  Sender: FDA-Public Use
  Company Number: US-MERCK-1204USA00701

PATIENT
  Age: 78 Year
  Sex: Female

DRUGS (8)
  1. INVANZ [Suspect]
     Indication: CELLULITIS
     Route: 051
     Dates: start: 20120229, end: 20120307
  2. IRON (UNSPECIFIED) [Concomitant]
     Route: 065
  3. DIOVAN [Concomitant]
     Route: 065
  4. LASIX [Concomitant]
     Route: 065
  5. NORVASC [Concomitant]
     Route: 065
  6. MECLIZINE [Concomitant]
     Route: 065
  7. OMEGA-3 MARINE TRIGLYCERIDES [Concomitant]
     Route: 065
  8. SOTALOL HYDROCHLORIDE [Concomitant]
     Route: 065

REACTIONS (9)
  - ATRIAL FIBRILLATION [None]
  - UNRESPONSIVE TO STIMULI [None]
  - SUPERINFECTION [None]
  - SICK SINUS SYNDROME [None]
  - CONVULSION [None]
  - ENCEPHALITIS [None]
  - STATUS EPILEPTICUS [None]
  - URINARY TRACT INFECTION [None]
  - ANAEMIA [None]
